FAERS Safety Report 14152160 (Version 1)
Quarter: 2017Q4

REPORT INFORMATION
  Report Type: Spontaneous
  Country: US (occurrence: None)
  Receive Date: 20171102
  Receipt Date: 20171102
  Transmission Date: 20180321
  Serious: No
  Sender: FDA-Public Use
  Company Number: None

PATIENT
  Age: 71 Year
  Sex: Male

DRUGS (1)
  1. TRELSTAR [Suspect]
     Active Substance: TRIPTORELIN PAMOATE
     Indication: PROSTATE CANCER
     Dosage: Q3M
     Route: 030
     Dates: start: 20170915

REACTIONS (4)
  - Fatigue [None]
  - Pain [None]
  - Dyschezia [None]
  - Hot flush [None]

NARRATIVE: CASE EVENT DATE: 20171005
